FAERS Safety Report 16347088 (Version 1)
Quarter: 2019Q2

REPORT INFORMATION
  Report Type: Spontaneous
  Country: US (occurrence: US)
  Receive Date: 20190523
  Receipt Date: 20190523
  Transmission Date: 20190711
  Serious: No
  Sender: FDA-Public Use
  Company Number: US-TARO-2018TAR00778

PATIENT
  Age: 4 Month
  Sex: Female
  Weight: 6.08 kg

DRUGS (2)
  1. FEVERALL INFANTS [Suspect]
     Active Substance: ACETAMINOPHEN
     Indication: PYREXIA
     Dosage: 80 MG, EVERY 6 HOURS AS NEEDED
     Route: 054
     Dates: start: 20181019, end: 20181020
  2. VITAMIN D [Concomitant]
     Active Substance: VITAMIN D NOS

REACTIONS (4)
  - Underdose [Recovered/Resolved]
  - Rash [Recovering/Resolving]
  - Viral rash [Recovering/Resolving]
  - Nasopharyngitis [Not Recovered/Not Resolved]

NARRATIVE: CASE EVENT DATE: 20181019
